FAERS Safety Report 18967892 (Version 2)
Quarter: 2021Q1

REPORT INFORMATION
  Report Type: Report from Study
  Country: CH (occurrence: CH)
  Receive Date: 20210304
  Receipt Date: 20210319
  Transmission Date: 20210420
  Serious: Yes (Hospitalization)
  Sender: FDA-Public Use
  Company Number: NVSC2021CH048004

PATIENT
  Age: 85 Year
  Sex: Female
  Weight: 69 kg

DRUGS (6)
  1. ROSUVASTATIN. [Concomitant]
     Active Substance: ROSUVASTATIN
     Indication: HYPERCHOLESTEROLAEMIA
     Dosage: 5 MG, QD
     Route: 065
     Dates: start: 2005, end: 20210223
  2. INC280 [Suspect]
     Active Substance: CAPMATINIB
     Indication: NON-SMALL CELL LUNG CANCER
     Dosage: 300 MG, BID
     Route: 048
     Dates: start: 20201126, end: 20210222
  3. CANDESARTAN. [Concomitant]
     Active Substance: CANDESARTAN
     Indication: HYPERTENSION
     Dosage: 16 MG
     Route: 065
     Dates: start: 2005, end: 20210223
  4. TORASEMIDE [Interacting]
     Active Substance: TORSEMIDE
     Indication: OEDEMA
     Dosage: 5 MG, QD
     Route: 065
     Dates: start: 20210216, end: 20210223
  5. TORASEMIDE [Interacting]
     Active Substance: TORSEMIDE
     Dosage: UNK
     Route: 065
     Dates: start: 20210301
  6. ATENOLOL. [Concomitant]
     Active Substance: ATENOLOL
     Indication: HYPERTENSION
     Dosage: 25 MG, QD
     Route: 065
     Dates: start: 2005, end: 20210223

REACTIONS (3)
  - Atrial fibrillation [Recovered/Resolved]
  - Drug interaction [Unknown]
  - Oedema [Recovered/Resolved]

NARRATIVE: CASE EVENT DATE: 20210208
